FAERS Safety Report 7473608-7 (Version None)
Quarter: 2011Q1

REPORT INFORMATION
  Report Type: 
  Country: None (occurrence: None)
  Receive Date: 20110302
  Receipt Date: 20100908
  Transmission Date: 20110831
  Serious: Yes (Hospitalization)
  Sender: FDA-Public Use
  Company Number: 163-21880-10081241

PATIENT
  Age: 73 Year
  Sex: Male

DRUGS (4)
  1. MIRTAZAPINE [Concomitant]
  2. REVLIMID [Suspect]
     Indication: MULTIPLE MYELOMA
     Dosage: 10 MG, 1 IN 1 D, PO
     Route: 048
     Dates: start: 20100727
  3. AMBIEN [Concomitant]
  4. FENTANYL [Concomitant]

REACTIONS (5)
  - HYPOVOLAEMIC SHOCK [None]
  - RENAL FAILURE ACUTE [None]
  - DEHYDRATION [None]
  - HYPOTENSION [None]
  - ANAEMIA [None]
